FAERS Safety Report 20060820 (Version 1)
Quarter: 2021Q4

REPORT INFORMATION
  Report Type: Spontaneous
  Country: US (occurrence: None)
  Receive Date: 20211112
  Receipt Date: 20211112
  Transmission Date: 20220303
  Serious: No
  Sender: FDA-Public Use
  Company Number: US-Unichem Pharmaceuticals (USA) Inc-UCM202104-000397

PATIENT
  Age: 55 Year
  Sex: Female
  Weight: 74.84 kg

DRUGS (2)
  1. AMLODIPINE [Suspect]
     Active Substance: AMLODIPINE BESYLATE
     Indication: Hypertension
     Dates: start: 201912, end: 20210328
  2. LORAZEPAM [Concomitant]
     Active Substance: LORAZEPAM
     Indication: Product used for unknown indication

REACTIONS (4)
  - Abdominal distension [Recovered/Resolved]
  - Fear [Recovered/Resolved]
  - Anxiety [Recovered/Resolved]
  - Pollakiuria [Recovered/Resolved]
